FAERS Safety Report 6263095-9 (Version None)
Quarter: 2009Q3

REPORT INFORMATION
  Report Type: 
  Country: None (occurrence: None)
  Receive Date: 20090708
  Receipt Date: 20090708
  Transmission Date: 20100115
  Serious: Yes (Disabling)
  Sender: FDA-Public Use
  Company Number: None

PATIENT
  Sex: Female
  Weight: 49.8957 kg

DRUGS (1)
  1. ZICAM LLC, PHOENIX, AZ 85016 (MATRIXX INITIATIVES, INC.) [Suspect]
     Indication: NASOPHARYNGITIS
     Dosage: 1 PUMP TWICE DAILY NOSE
     Route: 045
     Dates: start: 20090301

REACTIONS (2)
  - ANOSMIA [None]
  - HYPOGEUSIA [None]
